FAERS Safety Report 4849614-5 (Version None)
Quarter: 2005Q4

REPORT INFORMATION
  Report Type: 
  Country: None (occurrence: None)
  Receive Date: 20051207
  Receipt Date: 20051128
  Transmission Date: 20060501
  Serious: Yes (Death)
  Sender: FDA-Public Use
  Company Number: 2005-11-1760

PATIENT
  Age: 73 Year
  Sex: Male

DRUGS (3)
  1. INTEGRILIN [Suspect]
     Indication: CORONARY ANGIOPLASTY
     Dosage: 180 MCG/KG INTRAVENOUS
     Route: 042
     Dates: start: 20050101, end: 20050101
  2. ASPEGIC INJECTABLE [Suspect]
     Indication: CORONARY ANGIOPLASTY
     Dosage: 500 MG INTRAVENOUS
     Route: 042
     Dates: start: 20050101, end: 20050101
  3. HEPARIN [Suspect]
     Indication: CORONARY ANGIOPLASTY
     Dosage: 0.7MG/KG INTRAVENOUS
     Route: 042
     Dates: start: 20050101, end: 20050101

REACTIONS (2)
  - CARDIOGENIC SHOCK [None]
  - PULMONARY ALVEOLAR HAEMORRHAGE [None]
